FAERS Safety Report 6657362-4 (Version None)
Quarter: 2010Q1

REPORT INFORMATION
  Report Type: 
  Country: None (occurrence: None)
  Receive Date: 20100325
  Receipt Date: 20100315
  Transmission Date: 20100710
  Serious: Yes (Life-Threatening, Hospitalization)
  Sender: FDA-Public Use
  Company Number: 232681J10USA

PATIENT
  Age: 41 Year
  Sex: Male

DRUGS (5)
  1. REBIF [Suspect]
     Indication: MULTIPLE SCLEROSIS
     Dosage: 44 MCG, 3 IN 1 WEEKS, SUBCUTANEOUS
     Route: 058
     Dates: start: 20080205, end: 20100215
  2. FLOMAX (MORNIFLUMATE) [Concomitant]
  3. CLONOPIN [Concomitant]
  4. LISINOPRIL WITH HYDROCHLOROTHIAZIDE (PRINZIDE /00977901/) [Concomitant]
  5. AMITRIPTYLINE HYDROCHLORIDE [Concomitant]

REACTIONS (3)
  - CONTUSION [None]
  - HAEMORRHAGE [None]
  - PLATELET COUNT DECREASED [None]
